FAERS Safety Report 13182850 (Version 2)
Quarter: 2017Q1

REPORT INFORMATION
  Report Type: Report from Study
  Country: PT (occurrence: DE)
  Receive Date: 20170203
  Receipt Date: 20170211
  Transmission Date: 20170428
  Serious: Yes (Hospitalization, Other)
  Sender: FDA-Public Use
  Company Number: PT-SUNOVION-2017SUN000339

PATIENT

DRUGS (6)
  1. LEVETIRACETAM. [Concomitant]
     Active Substance: LEVETIRACETAM
     Dosage: 750 MG, 2X / DAY
  2. LAMOTRIGINE. [Concomitant]
     Active Substance: LAMOTRIGINE
     Indication: EPILEPSY
     Dosage: 400 MG, DAILY
     Route: 048
  3. ZEBINIX [Suspect]
     Active Substance: ESLICARBAZEPINE ACETATE
     Indication: EPILEPSY
     Dosage: 800 MG, DAILY
     Route: 048
     Dates: start: 20161120, end: 20161125
  4. LAMOTRIGINE. [Concomitant]
     Active Substance: LAMOTRIGINE
     Dosage: 225 MG, 2X / DAY
  5. ZEBINIX [Suspect]
     Active Substance: ESLICARBAZEPINE ACETATE
     Dosage: 1200 MG, DAILY
     Route: 048
     Dates: start: 20161126, end: 20161222
  6. LEVETIRACETAM. [Concomitant]
     Active Substance: LEVETIRACETAM
     Indication: EPILEPSY
     Dosage: 1600 MG, DAILY
     Route: 048

REACTIONS (7)
  - Complex partial seizures [Recovered/Resolved]
  - Headache [Recovered/Resolved]
  - Generalised tonic-clonic seizure [Recovered/Resolved]
  - Myoclonic epilepsy [Recovered/Resolved]
  - Drug dose titration not performed [Unknown]
  - Hyponatraemia [Recovered/Resolved]
  - Dizziness [Recovered/Resolved]

NARRATIVE: CASE EVENT DATE: 20161120
